FAERS Safety Report 13072783 (Version 2)
Quarter: 2019Q1

REPORT INFORMATION
  Report Type: Spontaneous
  Country: US (occurrence: US)
  Receive Date: 20161229
  Receipt Date: 20190218
  Transmission Date: 20190417
  Serious: Yes (Other)
  Sender: FDA-Public Use
  Company Number: US-SA-2016SA125633

PATIENT
  Sex: Female

DRUGS (2)
  1. TAXOTERE [Suspect]
     Active Substance: DOCETAXEL
     Indication: BREAST CANCER FEMALE
     Dosage: 147 MG, UNK
     Route: 042
     Dates: start: 20090122, end: 20090122
  2. TAXOTERE [Suspect]
     Active Substance: DOCETAXEL
     Dosage: 147 MG, UNK
     Route: 042
     Dates: start: 20090507, end: 20090507

REACTIONS (4)
  - Alopecia [Not Recovered/Not Resolved]
  - Emotional distress [Unknown]
  - Decreased interest [Unknown]
  - Pain [Unknown]
